FAERS Safety Report 7937670-7 (Version None)
Quarter: 2011Q4

REPORT INFORMATION
  Report Type: 
  Country: None (occurrence: None)
  Receive Date: 20111123
  Receipt Date: 20111111
  Transmission Date: 20120403
  Serious: Yes (Disabling, Other)
  Sender: FDA-Public Use
  Company Number: PHHY2011EC100751

PATIENT
  Sex: Female

DRUGS (1)
  1. EXFORGE [Suspect]
     Indication: HYPERTENSION
     Dosage: 1 DF (160/5 MG), QD
     Route: 048
     Dates: start: 20090401

REACTIONS (2)
  - AMNESIA [None]
  - CEREBROVASCULAR ACCIDENT [None]
